FAERS Safety Report 13637540 (Version 1)
Quarter: 2017Q2

REPORT INFORMATION
  Report Type: Spontaneous
  Country: US (occurrence: US)
  Receive Date: 20170609
  Receipt Date: 20170609
  Transmission Date: 20170830
  Serious: No
  Sender: FDA-Public Use
  Company Number: US-TEVA-775213USA

PATIENT
  Age: 41 Year
  Sex: Female
  Weight: 54.48 kg

DRUGS (1)
  1. COPAXONE [Suspect]
     Active Substance: GLATIRAMER ACETATE
     Indication: MULTIPLE SCLEROSIS
     Dosage: 17.1429 MILLIGRAM/MILLILITERS DAILY;
     Route: 058
     Dates: start: 20170328, end: 20170512

REACTIONS (4)
  - Injection site pain [Unknown]
  - Hepatic enzyme increased [Not Recovered/Not Resolved]
  - Erythema [Unknown]
  - Urticaria [Unknown]

NARRATIVE: CASE EVENT DATE: 20170512
